FAERS Safety Report 7931403-6 (Version None)
Quarter: 2011Q4

REPORT INFORMATION
  Report Type: 
  Country: None (occurrence: None)
  Receive Date: 20111121
  Receipt Date: 20111116
  Transmission Date: 20120403
  Serious: Yes (Hospitalization, Other)
  Sender: FDA-Public Use
  Company Number: JP-PFIZER INC-2011266432

PATIENT
  Age: 58 Year
  Sex: Female
  Weight: 53 kg

DRUGS (8)
  1. VOLTAREN [Concomitant]
     Indication: PAIN MANAGEMENT
     Dosage: 25 MG, 3X/DAY
     Route: 048
     Dates: start: 20111021
  2. SOLU-CORTEF [Suspect]
     Indication: LARYNGEAL OEDEMA
     Dosage: 100 MG/ DAY
     Route: 041
     Dates: start: 20111020, end: 20111020
  3. BETAMETHASONE [Concomitant]
     Dosage: UNK
  4. MUCOSTA [Concomitant]
     Indication: PAIN MANAGEMENT
     Dosage: 100 MG, 3X/DAY
     Route: 048
     Dates: start: 20111021
  5. CLINDAMYCIN HCL [Suspect]
     Indication: POST PROCEDURAL INFECTION
     Dosage: 1200 MG /DAY
     Route: 041
     Dates: start: 20111020, end: 20111021
  6. BESTRON [Concomitant]
     Dosage: UNK
  7. CADUET [Concomitant]
     Indication: HYPERTENSION
     Dosage: 1 DF [AMLODIPINE BESILATE 5 MG]/[ATORVASTATIN CALCIUM 5 MG], 1X/DAY
     Route: 048
  8. ADONA [Suspect]
     Indication: HAEMOSTASIS
     Dosage: 100 MG/ DAY
     Route: 041
     Dates: start: 20111020, end: 20111021

REACTIONS (1)
  - DRUG ERUPTION [None]
